FAERS Safety Report 9106317 (Version 3)
Quarter: 2013Q2

REPORT INFORMATION
  Report Type: Report from Study
  Country: SD (occurrence: SD)
  Receive Date: 20130221
  Receipt Date: 20130429
  Transmission Date: 20140414
  Serious: Yes (Death, Other)
  Sender: FDA-Public Use
  Company Number: PHHY2013SD016350

PATIENT
  Age: 43 Year
  Sex: Female
  Weight: 70 kg

DRUGS (3)
  1. GLIVEC [Suspect]
     Indication: CHRONIC MYELOID LEUKAEMIA
     Dosage: 800 MG
     Dates: start: 20040902
  2. GLIVEC [Suspect]
     Dosage: 400 MG DAY
     Dates: start: 2004
  3. GLIVEC [Suspect]
     Dosage: 600 MG PER DAY
     Dates: start: 20120928

REACTIONS (4)
  - Circulatory collapse [Fatal]
  - Chronic myeloid leukaemia [Unknown]
  - Platelet count decreased [Unknown]
  - Haemoglobin decreased [Unknown]
